FAERS Safety Report 7630272-1 (Version None)
Quarter: 2011Q3

REPORT INFORMATION
  Report Type: 
  Country: None (occurrence: None)
  Receive Date: 20110722
  Receipt Date: 20110708
  Transmission Date: 20111222
  Serious: Yes (Other)
  Sender: FDA-Public Use
  Company Number: PHHY2011US65517

PATIENT
  Age: 15 Year
  Sex: Male

DRUGS (10)
  1. FISH OIL [Concomitant]
  2. GABAPENTIN [Concomitant]
  3. MULTIPLE VITAMINS [Concomitant]
  4. GUANFACINE HYDROCHLORIDE [Concomitant]
  5. METHYLPHENIDATE [Concomitant]
  6. INOSITOL [Concomitant]
  7. CLOZAPINE [Suspect]
  8. MIRALAX [Concomitant]
     Dosage: 17 G, EVERY MORNING
  9. CLONAZEPAM [Concomitant]
  10. AMPHETAMINE [Concomitant]

REACTIONS (20)
  - ENURESIS [None]
  - PRIAPISM [None]
  - CRYING [None]
  - SLEEP DISORDER [None]
  - DECREASED APPETITE [None]
  - ENCOPRESIS [None]
  - EXCESSIVE MASTURBATION [None]
  - WEIGHT DECREASED [None]
  - BIPOLAR I DISORDER [None]
  - SPEECH DISORDER [None]
  - INSOMNIA [None]
  - SALIVARY HYPERSECRETION [None]
  - IRRITABILITY [None]
  - AGGRESSION [None]
  - DISINHIBITION [None]
  - AFFECTIVE DISORDER [None]
  - ANHEDONIA [None]
  - ABNORMAL BEHAVIOUR [None]
  - AGITATION [None]
  - DEPRESSED MOOD [None]
